FAERS Safety Report 7103635-0 (Version None)
Quarter: 2010Q4

REPORT INFORMATION
  Report Type: 
  Country: None (occurrence: None)
  Receive Date: 20101115
  Receipt Date: 20101108
  Transmission Date: 20110411
  Serious: Yes (Death, Hospitalization, Other)
  Sender: FDA-Public Use
  Company Number: TW-ELI_LILLY_AND_COMPANY-TW201011003287

PATIENT
  Sex: Male

DRUGS (6)
  1. GEMZAR [Suspect]
     Indication: LUNG ADENOCARCINOMA STAGE IV
     Dosage: 600 MG/M2, UNKNOWN
     Route: 065
     Dates: start: 20101007
  2. CISPLATIN [Concomitant]
     Indication: LUNG ADENOCARCINOMA STAGE IV
     Dosage: 75 MG/M2, ONE EVERY 21 DAYS
     Route: 042
  3. TRAMADOL HCL [Concomitant]
     Indication: BONE PAIN
     Dosage: UNK, UNKNOWN
     Route: 065
     Dates: start: 20100826
  4. BISACODYL [Concomitant]
     Indication: CONSTIPATION
     Dosage: UNK, UNKNOWN
     Route: 065
     Dates: start: 20100803
  5. LORAZEPAM [Concomitant]
     Indication: HYPOAESTHESIA
     Dosage: UNK, UNKNOWN
     Route: 065
     Dates: start: 20100824
  6. DOMPERIDONE [Concomitant]
     Indication: DECREASED APPETITE
     Dosage: UNK, UNKNOWN
     Route: 065
     Dates: start: 20100803

REACTIONS (5)
  - DECREASED APPETITE [None]
  - OEDEMA PERIPHERAL [None]
  - PNEUMONIA [None]
  - RESPIRATORY FAILURE [None]
  - VOMITING [None]
